FAERS Safety Report 6908886-3 (Version None)
Quarter: 2010Q3

REPORT INFORMATION
  Report Type: 
  Country: None (occurrence: None)
  Receive Date: 20100719
  Receipt Date: 20090923
  Transmission Date: 20110219
  Serious: Yes (Other)
  Sender: FDA-Public Use
  Company Number: US-WYE-H11187209

PATIENT
  Age: 39 Year
  Sex: Female
  Weight: 52.21 kg

DRUGS (2)
  1. ADVIL LIQUI-GELS [Suspect]
     Indication: DYSMENORRHOEA
     Dosage: 1 TABLET 1X PER 1 DAY, ORAL
     Route: 048
     Dates: start: 20090922, end: 20090922
  2. NASONEX [Concomitant]

REACTIONS (4)
  - DYSPNOEA [None]
  - EAR DISCOMFORT [None]
  - HYPERSENSITIVITY [None]
  - PHARYNGEAL OEDEMA [None]
